FAERS Safety Report 15727438 (Version 7)
Quarter: 2019Q3

REPORT INFORMATION
  Report Type: Spontaneous
  Country: US (occurrence: US)
  Receive Date: 20181217
  Receipt Date: 20190722
  Transmission Date: 20191004
  Serious: No
  Sender: FDA-Public Use
  Company Number: US-BIOGEN-2018BI00669617

PATIENT
  Age: 38 Year
  Sex: Male

DRUGS (1)
  1. TYSABRI [Suspect]
     Active Substance: NATALIZUMAB
     Indication: MULTIPLE SCLEROSIS
     Route: 050
     Dates: start: 20160718

REACTIONS (13)
  - Anxiety [Not Recovered/Not Resolved]
  - Poor venous access [Unknown]
  - Anger [Not Recovered/Not Resolved]
  - Emotional distress [Not Recovered/Not Resolved]
  - Malaise [Unknown]
  - Tremor [Unknown]
  - Fear [Unknown]
  - Nerve injury [Not Recovered/Not Resolved]
  - Stress [Not Recovered/Not Resolved]
  - Mood swings [Not Recovered/Not Resolved]
  - Memory impairment [Recovered/Resolved]
  - Nervousness [Unknown]
  - Fatigue [Unknown]

NARRATIVE: CASE EVENT DATE: 2018
